FAERS Safety Report 17376692 (Version 1)
Quarter: 2020Q1

REPORT INFORMATION
  Report Type: Spontaneous
  Country: NL (occurrence: NL)
  Receive Date: 20200206
  Receipt Date: 20200206
  Transmission Date: 20200409
  Serious: Yes (Death, Hospitalization, Other)
  Sender: FDA-Public Use
  Company Number: NL-FERRINGPH-2012FE02537

PATIENT
  Age: 38 Year
  Sex: Female

DRUGS (3)
  1. TRIPTORELIN ACETATE [Suspect]
     Active Substance: TRIPTORELIN ACETATE
     Indication: IN VITRO FERTILISATION
     Dosage: DAILY DOSE: LONG PROTOCOL
     Route: 065
  2. UROFOLLITROPIN [Suspect]
     Active Substance: UROFOLLITROPIN
     Indication: IN VITRO FERTILISATION
     Route: 065
  3. CHORIONIC GONADOTROPHIN [Suspect]
     Active Substance: CHORIOGONADOTROPIN ALFA
     Indication: IN VITRO FERTILISATION
     Route: 065

REACTIONS (2)
  - Ovarian hyperstimulation syndrome [Fatal]
  - Carotid artery thrombosis [Fatal]
